FAERS Safety Report 7134779-5 (Version None)
Quarter: 2010Q4

REPORT INFORMATION
  Report Type: 
  Country: None (occurrence: None)
  Receive Date: 20101130
  Receipt Date: 20101130
  Transmission Date: 20110411
  Serious: Yes (Death)
  Sender: FDA-Public Use
  Company Number: None

PATIENT
  Age: 73 Year
  Sex: Female

DRUGS (11)
  1. REVLIMID [Suspect]
     Indication: MULTIPLE MYELOMA
     Dosage: 10 MG DAILY X21D/28D, ORALLY
     Route: 048
     Dates: start: 20090319, end: 20091110
  2. DEXAMETHASONE [Concomitant]
  3. PROCRIT [Concomitant]
  4. AREDIA [Concomitant]
  5. AMLODIPINE [Concomitant]
  6. ACYCLOVIR [Concomitant]
  7. PRAVASTATIN [Concomitant]
  8. GLIPIZIDE [Concomitant]
  9. HYDROCHLOROTHIAZIDE [Concomitant]
  10. LEVOTHROID [Concomitant]
  11. WARFARIN SODIUM [Concomitant]

REACTIONS (2)
  - PANCYTOPENIA [None]
  - TREMOR [None]
